FAERS Safety Report 6719381-9 (Version None)
Quarter: 2010Q2

REPORT INFORMATION
  Report Type: 
  Country: None (occurrence: None)
  Receive Date: 20100511
  Receipt Date: 20100506
  Transmission Date: 20101027
  Serious: Yes (Other)
  Sender: FDA-Public Use
  Company Number: AR-BRISTOL-MYERS SQUIBB COMPANY-15096076

PATIENT
  Sex: Male

DRUGS (1)
  1. ATAZANAVIR [Suspect]

REACTIONS (1)
  - LACTIC ACIDOSIS [None]
